FAERS Safety Report 12049661 (Version 1)
Quarter: 2016Q1

REPORT INFORMATION
  Report Type: Spontaneous
  Country: US (occurrence: None)
  Receive Date: 20160208
  Receipt Date: 20160208
  Transmission Date: 20160526
  Serious: No
  Sender: FDA-Public Use
  Company Number: None

PATIENT
  Age: 60 Year
  Sex: Female

DRUGS (1)
  1. HUMULIN NOS [Suspect]
     Active Substance: INSULIN HUMAN

REACTIONS (5)
  - Wrong technique in product usage process [None]
  - Brain neoplasm [None]
  - Vision blurred [None]
  - Blood glucose fluctuation [None]
  - Blood glucose decreased [None]
